FAERS Safety Report 18328426 (Version 4)
Quarter: 2022Q3

REPORT INFORMATION
  Report Type: Spontaneous
  Country: ES (occurrence: ES)
  Receive Date: 20200930
  Receipt Date: 20220913
  Transmission Date: 20221027
  Serious: Yes (Other)
  Sender: FDA-Public Use
  Company Number: NVSC2020ES184591

PATIENT
  Age: 46 Year
  Sex: Male

DRUGS (19)
  1. FENTANYL [Interacting]
     Active Substance: FENTANYL
     Indication: Chest pain
     Dosage: 200 UG, QD (0/0/0/1)
     Route: 002
  2. BUPRENORPHINE [Interacting]
     Active Substance: BUPRENORPHINE
     Indication: Chest pain
     Dosage: 52.5 UG EVERY 72 HRS (1/72H)
     Route: 065
  3. PRAVASTATIN [Interacting]
     Active Substance: PRAVASTATIN
     Indication: Hypercholesterolaemia
     Dosage: 40 MG, QD (0/0/1/0)
     Route: 065
     Dates: end: 2019
  4. EZETIMIBE [Interacting]
     Active Substance: EZETIMIBE
     Indication: Hypercholesterolaemia
     Dosage: 10 MG, QD, 3 MONTHS BEFORE (0/0/1/0)
     Route: 065
     Dates: start: 201904
  5. FENOFIBRATE [Interacting]
     Active Substance: FENOFIBRATE
     Indication: Hypercholesterolaemia
     Dosage: 160 MG, QD (0/0/1/0)
     Route: 065
     Dates: end: 2019
  6. BUPRENORPHINE [Suspect]
     Active Substance: BUPRENORPHINE
     Indication: Chest pain
     Dosage: 52.5 UG, QH
     Route: 062
  7. FENOFIBRATE\PRAVASTATIN [Interacting]
     Active Substance: FENOFIBRATE\PRAVASTATIN
     Indication: Hypercholesterolaemia
     Dosage: 1/0/0/0
     Route: 065
     Dates: end: 2019
  8. AMITRIPTYLINE [Concomitant]
     Active Substance: AMITRIPTYLINE
     Indication: Depression
     Dosage: 25 MG, QD (0/0/0/1)
     Route: 065
  9. ACETAMINOPHEN [Concomitant]
     Active Substance: ACETAMINOPHEN
     Indication: Chest pain
     Dosage: 1 G, QD (1/0/0/0)
     Route: 065
  10. METAMIZOLE [Concomitant]
     Active Substance: METAMIZOLE
     Indication: Chest pain
     Dosage: 575 MG, QD, 0/1/0/0
     Route: 065
  11. METFORMIN [Concomitant]
     Active Substance: METFORMIN HYDROCHLORIDE
     Indication: Type 2 diabetes mellitus
     Dosage: 1700 MG, QD (1/0/1/0)
     Route: 065
  12. ACETAMINOPHEN\TRAMADOL [Concomitant]
     Active Substance: ACETAMINOPHEN\TRAMADOL
     Indication: Chest pain
     Dosage: 0/0/1/0
     Route: 065
     Dates: end: 2019
  13. ACETAMINOPHEN\TRAMADOL [Concomitant]
     Active Substance: ACETAMINOPHEN\TRAMADOL
     Dosage: 75MG /650 MG 1/1/1/0
     Route: 065
  14. ACETAMINOPHEN\TRAMADOL [Concomitant]
     Active Substance: ACETAMINOPHEN\TRAMADOL
     Dosage: 3 DF, QD (1/1/1/0) (75 MG/650 MG)
     Route: 065
  15. ACETAMINOPHEN\TRAMADOL [Concomitant]
     Active Substance: ACETAMINOPHEN\TRAMADOL
     Dosage: 1 G, QD (1/0/0/0)
     Route: 065
  16. PREGABALIN [Concomitant]
     Active Substance: PREGABALIN
     Indication: Chest pain
     Dosage: 450 MG, QD (1/1/1/0)
     Route: 065
  17. PREGABALIN [Concomitant]
     Active Substance: PREGABALIN
     Dosage: 150 MG, Q8H (1/1/1/0)
     Route: 065
  18. ETORICOXIB [Concomitant]
     Active Substance: ETORICOXIB
     Indication: Chest pain
     Dosage: 90 MG, QD (1/0/0/0)
     Route: 065
  19. ENALAPRIL MALEATE\HYDROCHLOROTHIAZIDE [Concomitant]
     Active Substance: ENALAPRIL MALEATE\HYDROCHLOROTHIAZIDE
     Indication: Hypertension
     Dosage: 1 DF, QD (1/0/0/0) (20 MG/12.5 MG)
     Route: 065

REACTIONS (6)
  - Gamma-glutamyltransferase increased [Recovered/Resolved]
  - Drug interaction [Recovered/Resolved]
  - Hepatic enzyme increased [Recovering/Resolving]
  - Anxiety [Unknown]
  - Withdrawal syndrome [Unknown]
  - Chest pain [Unknown]
